FAERS Safety Report 13312139 (Version 1)
Quarter: 2017Q1

REPORT INFORMATION
  Report Type: Spontaneous
  Country: FR (occurrence: FR)
  Receive Date: 20170309
  Receipt Date: 20170309
  Transmission Date: 20170428
  Serious: Yes (Death)
  Sender: FDA-Public Use
  Company Number: FR-SAOL THERAPEUTICS-2017SAO00410

PATIENT
  Age: 46 Year
  Sex: Male

DRUGS (4)
  1. SERTRALINE [Suspect]
     Active Substance: SERTRALINE HYDROCHLORIDE
  2. ALCOHOL. [Suspect]
     Active Substance: ALCOHOL
  3. IRBESARTAN. [Suspect]
     Active Substance: IRBESARTAN
  4. LIORESAL [Suspect]
     Active Substance: BACLOFEN

REACTIONS (2)
  - Toxicity to various agents [Fatal]
  - Asphyxia [Fatal]
